FAERS Safety Report 4588341-9 (Version None)
Quarter: 2005Q1

REPORT INFORMATION
  Report Type: 
  Country: None (occurrence: None)
  Receive Date: 20050216
  Receipt Date: 20050204
  Transmission Date: 20050727
  Serious: No
  Sender: FDA-Public Use
  Company Number: 2005AP01022

PATIENT
  Age: 24 Year
  Sex: Female

DRUGS (7)
  1. PROPOFOL [Suspect]
  2. KEFLIN [Suspect]
  3. FENTANYL [Suspect]
  4. LIGNOCAINE [Suspect]
  5. CEPHALOTHIN [Suspect]
  6. DEXAMETHASONE [Suspect]
  7. ONDANSETRON HCL [Suspect]

REACTIONS (1)
  - RASH MACULO-PAPULAR [None]
